FAERS Safety Report 6922479-3 (Version None)
Quarter: 2010Q3

REPORT INFORMATION
  Report Type: 
  Country: None (occurrence: None)
  Receive Date: 20100813
  Receipt Date: 20100803
  Transmission Date: 20110219
  Serious: Yes (Other)
  Sender: FDA-Public Use
  Company Number: US-BAYER-201029704NA

PATIENT
  Age: 30 Year
  Sex: Male

DRUGS (1)
  1. MAGNEVIST [Suspect]
     Indication: NUCLEAR MAGNETIC RESONANCE IMAGING
     Dosage: AS USED: 15 ML
     Dates: start: 20100802, end: 20100802

REACTIONS (3)
  - CHEST DISCOMFORT [None]
  - RETCHING [None]
  - VOMITING [None]
